FAERS Safety Report 8986180 (Version 1)
Quarter: 2012Q4

REPORT INFORMATION
  Report Type: Spontaneous
  Country: US (occurrence: None)
  Receive Date: 20121217
  Receipt Date: 20121217
  Transmission Date: 20130627
  Serious: Yes (Death, Hospitalization)
  Sender: FDA-Public Use
  Company Number: OTH-LIT-2012013

PATIENT
  Sex: Female

DRUGS (6)
  1. CYSTADANE [Suspect]
     Indication: HOMOCYSTINURIA
     Route: 048
  2. FOLATE [Concomitant]
  3. PYRIDOXINE [Concomitant]
  4. ACETYLSALICYLIC ACID [Concomitant]
  5. PARACETAMOL [Concomitant]
  6. ASPIRIN [Concomitant]

REACTIONS (12)
  - Leukoencephalopathy [None]
  - Treatment noncompliance [None]
  - Condition aggravated [None]
  - Sudden death [None]
  - Malnutrition [None]
  - Pancreatitis [None]
  - Vomiting [None]
  - Disease recurrence [None]
  - Oedema [None]
  - Amino acid level decreased [None]
  - Blood albumin decreased [None]
  - Deep vein thrombosis [None]
